FAERS Safety Report 5093076-2 (Version None)
Quarter: 2006Q3

REPORT INFORMATION
  Report Type: 
  Country: None (occurrence: None)
  Receive Date: 20060830
  Receipt Date: 20060725
  Transmission Date: 20061208
  Serious: Yes (Hospitalization)
  Sender: FDA-Public Use
  Company Number: JP-BRISTOL-MYERS SQUIBB COMPANY-13461694

PATIENT
  Age: 10 Year
  Sex: Male

DRUGS (23)
  1. ENDOXAN [Suspect]
     Indication: BONE MARROW CONDITIONING REGIMEN
     Route: 041
     Dates: start: 20060209, end: 20060212
  2. METHOTREXATE [Suspect]
     Indication: PROPHYLAXIS AGAINST TRANSPLANT REJECTION
  3. ZETBULIN [Suspect]
     Indication: BONE MARROW CONDITIONING REGIMEN
     Dates: start: 20060209, end: 20060212
  4. TACROLIMUS [Suspect]
     Indication: PROPHYLAXIS AGAINST TRANSPLANT REJECTION
  5. ANTILYMPHOCYTE IMMUNOGLOBULIN [Suspect]
     Indication: PROPHYLAXIS AGAINST TRANSPLANT REJECTION
  6. BACTRIM [Suspect]
     Indication: INFECTION PROPHYLAXIS
     Route: 048
     Dates: start: 20060204
  7. BROACT [Suspect]
     Indication: INFECTION PROPHYLAXIS
     Route: 041
     Dates: start: 20060210
  8. LEVOFLOXACIN [Suspect]
     Indication: INFECTION PROPHYLAXIS
     Route: 048
     Dates: start: 20060204
  9. VALTRAX [Suspect]
     Indication: INFECTION PROPHYLAXIS
     Route: 048
     Dates: start: 20060204
  10. DIFLUCAN [Suspect]
     Indication: INFECTION PROPHYLAXIS
     Route: 048
     Dates: start: 20060204
  11. DENOSINE [Suspect]
     Indication: INFECTION PROPHYLAXIS
     Route: 041
     Dates: start: 20060208
  12. LIPLE [Suspect]
     Indication: VENOOCCLUSIVE DISEASE
     Route: 041
     Dates: start: 20060209
  13. PRODIF [Suspect]
     Indication: INFECTION PROPHYLAXIS
     Route: 041
     Dates: start: 20060210
  14. UROMITEXAN [Concomitant]
     Dates: start: 20060209, end: 20060212
  15. FLUDARA [Concomitant]
     Dates: start: 20060207, end: 20060212
  16. URSO [Concomitant]
     Dates: start: 20060204
  17. GASTER [Concomitant]
     Dates: start: 20060204
  18. METILON [Concomitant]
     Dates: start: 20060209
  19. SOLU-MEDROL [Concomitant]
     Dates: start: 20060209
  20. ATARAX [Concomitant]
     Dates: start: 20060209
  21. KYTRIL [Concomitant]
     Dates: start: 20060207
  22. LASIX [Concomitant]
     Dates: start: 20060209
  23. PENTAGIN [Concomitant]
     Dates: start: 20060209

REACTIONS (9)
  - ARTHRALGIA [None]
  - C-REACTIVE PROTEIN INCREASED [None]
  - DIARRHOEA [None]
  - GRAFT VERSUS HOST DISEASE [None]
  - HYPONATRAEMIA [None]
  - INFECTION IN AN IMMUNOCOMPROMISED HOST [None]
  - LIVER DISORDER [None]
  - NEUTROPHIL COUNT DECREASED [None]
  - ORAL MUCOSAL DISORDER [None]
